FAERS Safety Report 12541958 (Version 1)
Quarter: 2016Q3

REPORT INFORMATION
  Report Type: Spontaneous
  Country: US (occurrence: US)
  Receive Date: 20160708
  Receipt Date: 20160708
  Transmission Date: 20161109
  Serious: No
  Sender: FDA-Public Use
  Company Number: US-ASTRAZENECA-2016SE52117

PATIENT
  Sex: Female
  Weight: 59 kg

DRUGS (7)
  1. VITAMIN B12 [Concomitant]
     Active Substance: CYANOCOBALAMIN
     Indication: RED BLOOD CELL ANALYSIS
     Route: 048
     Dates: start: 20160303
  2. FOLIC ACID. [Concomitant]
     Active Substance: FOLIC ACID
     Indication: RED BLOOD CELL ANALYSIS
     Route: 048
     Dates: start: 20160303
  3. COENZYME Q10 [Concomitant]
     Active Substance: UBIDECARENONE
     Indication: RED BLOOD CELL ANALYSIS
     Route: 048
  4. SERTRALINE [Concomitant]
     Active Substance: SERTRALINE HYDROCHLORIDE
     Indication: DEATH OF RELATIVE
     Route: 048
  5. CRESTOR [Suspect]
     Active Substance: ROSUVASTATIN CALCIUM
     Indication: BLOOD CHOLESTEROL
     Route: 048
     Dates: start: 2008
  6. LEVOTHYROXINE. [Concomitant]
     Active Substance: LEVOTHYROXINE
     Indication: THYROID DISORDER
     Route: 048
  7. VITAMIN D [Concomitant]
     Active Substance: CHOLECALCIFEROL
     Route: 048
     Dates: start: 20160307

REACTIONS (9)
  - Urine output decreased [Unknown]
  - Muscle atrophy [Unknown]
  - Rash [Unknown]
  - Back pain [Unknown]
  - Pain in extremity [Unknown]
  - Muscle spasms [Unknown]
  - Neck pain [Unknown]
  - Musculoskeletal pain [Unknown]
  - Muscular weakness [Unknown]
